FAERS Safety Report 5255233-1 (Version None)
Quarter: 2007Q1

REPORT INFORMATION
  Report Type: 
  Country: None (occurrence: None)
  Receive Date: 20070305
  Receipt Date: 20070222
  Transmission Date: 20070707
  Serious: Yes (Hospitalization)
  Sender: FDA-Public Use
  Company Number: GB-ROCHE-484899

PATIENT
  Age: 43 Year
  Sex: Female
  Weight: 98 kg

DRUGS (7)
  1. XENICAL [Suspect]
     Indication: OBESITY
     Route: 048
     Dates: start: 20060926, end: 20070122
  2. LEVOTHYROXINE SODIUM [Concomitant]
     Indication: HYPOTHYROIDISM
     Route: 048
     Dates: start: 20020615
  3. VENLAFAXINE HCL [Concomitant]
     Indication: DEPRESSION
     Route: 048
     Dates: start: 20020615
  4. ACYCLOVIR [Concomitant]
     Route: 048
     Dates: start: 20020615
  5. SALBUTAMOL [Concomitant]
     Indication: ASTHMA
     Route: 055
  6. QVAR 40 [Concomitant]
     Route: 055
  7. CHLORPHENIRAMINE MALEATE [Concomitant]

REACTIONS (1)
  - FALL [None]
